FAERS Safety Report 8616130-4 (Version None)
Quarter: 2012Q3

REPORT INFORMATION
  Report Type: 
  Country: None (occurrence: None)
  Receive Date: 20120815
  Receipt Date: 20120815
  Transmission Date: 20120928
  Serious: No
  Sender: FDA-Public Use
  Company Number: None

PATIENT
  Sex: Female
  Weight: 98.8842 kg

DRUGS (1)
  1. ACYCLOVIR [Suspect]
     Indication: HERPES SIMPLEX
     Dosage: 400 MG TID PO
     Route: 048
     Dates: start: 20120722, end: 20120811

REACTIONS (3)
  - PRODUCT PHYSICAL ISSUE [None]
  - HEADACHE [None]
  - NAUSEA [None]
